FAERS Safety Report 18344414 (Version 1)
Quarter: 2020Q4

REPORT INFORMATION
  Report Type: Spontaneous
  Country: CA (occurrence: CA)
  Receive Date: 20201005
  Receipt Date: 20201005
  Transmission Date: 20210114
  Serious: Yes (Disabling)
  Sender: FDA-Public Use
  Company Number: CA-TEVA-2020-CA-1835467

PATIENT
  Age: 46 Year
  Sex: Female
  Weight: 80 kg

DRUGS (17)
  1. REMICADE [Suspect]
     Active Substance: INFLIXIMAB
     Indication: RHEUMATOID ARTHRITIS
     Route: 042
  2. XELJANZ [Suspect]
     Active Substance: TOFACITINIB CITRATE
     Indication: RHEUMATOID ARTHRITIS
     Route: 048
  3. ARAVA [Suspect]
     Active Substance: LEFLUNOMIDE
     Indication: RHEUMATOID ARTHRITIS
     Route: 065
  4. HYDROXYCHLOROQUINE SULFATE. [Suspect]
     Active Substance: HYDROXYCHLOROQUINE SULFATE
     Indication: RHEUMATOID ARTHRITIS
     Route: 065
  5. METHOTREXATE. [Suspect]
     Active Substance: METHOTREXATE
     Indication: RHEUMATOID ARTHRITIS
     Route: 065
  6. LEFLUNOMIDE. [Concomitant]
     Active Substance: LEFLUNOMIDE
     Route: 065
  7. ENBREL [Suspect]
     Active Substance: ETANERCEPT
     Indication: RHEUMATOID ARTHRITIS
     Route: 065
  8. GOLD [Suspect]
     Active Substance: GOLD
     Indication: RHEUMATOID ARTHRITIS
     Route: 065
  9. ORENCIA [Suspect]
     Active Substance: ABATACEPT
     Indication: RHEUMATOID ARTHRITIS
     Route: 042
  10. PREDNISONE. [Concomitant]
     Active Substance: PREDNISONE
     Dosage: 4 DOSAGE FORMS DAILY;
     Route: 048
  11. PREDNISONE. [Concomitant]
     Active Substance: PREDNISONE
     Dosage: 1 DOSAGE FORMS DAILY;
     Route: 048
  12. DEPO-MEDROL [Concomitant]
     Active Substance: METHYLPREDNISOLONE ACETATE
     Route: 014
  13. PREDNISONE. [Concomitant]
     Active Substance: PREDNISONE
     Dosage: 3 DOSAGE FORMS DAILY;
     Route: 048
  14. ACTEMRA [Suspect]
     Active Substance: TOCILIZUMAB
     Indication: RHEUMATOID ARTHRITIS
     Route: 065
  15. ERGOCALCIFEROL. [Concomitant]
     Active Substance: ERGOCALCIFEROL
     Dosage: 2000 DOSAGE FORMS DAILY;
     Route: 048
  16. HUMIRA [Concomitant]
     Active Substance: ADALIMUMAB
     Indication: RHEUMATOID ARTHRITIS
     Route: 058
  17. PREDNISONE. [Concomitant]
     Active Substance: PREDNISONE
     Dosage: 2 DOSAGE FORMS DAILY;
     Route: 048

REACTIONS (14)
  - Benign neoplasm [Unknown]
  - Drug ineffective [Unknown]
  - Fatigue [Unknown]
  - Peripheral swelling [Unknown]
  - Vaginal haematoma [Unknown]
  - Headache [Unknown]
  - Abdominal discomfort [Unknown]
  - Disability [Unknown]
  - Influenza like illness [Unknown]
  - Malaise [Unknown]
  - Off label use [Unknown]
  - Spinal pain [Unknown]
  - Bladder operation [Unknown]
  - Urinary tract infection [Unknown]
